FAERS Safety Report 11364907 (Version 1)
Quarter: 2015Q3

REPORT INFORMATION
  Report Type: Report from Study
  Country: US (occurrence: US)
  Receive Date: 20150811
  Receipt Date: 20150811
  Transmission Date: 20151125
  Serious: Yes (Hospitalization)
  Sender: FDA-Public Use
  Company Number: US-SIGMA-TAU US-2015STPI000522

PATIENT
  Age: 13 Year
  Sex: Female

DRUGS (11)
  1. SENNA [Concomitant]
     Active Substance: SENNA LEAF\SENNOSIDES\SENNOSIDES A AND B
  2. ONCASPAR [Suspect]
     Active Substance: PEGASPARGASE
     Indication: ACUTE LYMPHOCYTIC LEUKAEMIA
     Dosage: 2500 IU/M2, DAY 7 OF INDUCTION; DAY 8 OF CONS-IC; EVERY 3 WEEKS FOR 30 WKS POST-INDUCTION
     Route: 042
     Dates: start: 20150504, end: 20150727
  3. ETOPOSIDE. [Suspect]
     Active Substance: ETOPOSIDE
     Indication: ACUTE LYMPHOCYTIC LEUKAEMIA
     Dosage: 100 MG/M2, DAY 3, 4 AND 5 IN CONS-I C
     Route: 042
     Dates: start: 20150722, end: 20150724
  4. CYTARABINE. [Suspect]
     Active Substance: CYTARABINE
     Indication: ACUTE LYMPHOCYTIC LEUKAEMIA
     Dosage: 2 G/M2, Q12H TOTAL 4 DOSES STARTING D1 CONS-I C
     Route: 042
     Dates: start: 20150720, end: 20150722
  5. ZOFRAN [Concomitant]
     Active Substance: ONDANSETRON HYDROCHLORIDE
  6. MIRALAX [Concomitant]
     Active Substance: POLYETHYLENE GLYCOL 3350
  7. DEXAMETHASONE. [Suspect]
     Active Substance: DEXAMETHASONE
     Indication: ACUTE LYMPHOCYTIC LEUKAEMIA
     Dosage: 18 MG/M2, DAY 1-5 OF EACH CONS-I C
     Route: 048
     Dates: start: 20150720, end: 20150724
  8. BACTRIM [Concomitant]
     Active Substance: SULFAMETHOXAZOLE\TRIMETHOPRIM
  9. LORAZEPAM. [Concomitant]
     Active Substance: LORAZEPAM
  10. TUMS [Concomitant]
     Active Substance: CALCIUM CARBONATE
  11. MARINOL [Concomitant]
     Active Substance: DRONABINOL

REACTIONS (1)
  - Sepsis [Not Recovered/Not Resolved]

NARRATIVE: CASE EVENT DATE: 20150802
